FAERS Safety Report 9494519 (Version 1)
Quarter: 2013Q3

REPORT INFORMATION
  Report Type: Spontaneous
  Country: US (occurrence: US)
  Receive Date: 20130903
  Receipt Date: 20130903
  Transmission Date: 20140515
  Serious: Yes (Hospitalization, Disabling, Other)
  Sender: FDA-Public Use
  Company Number: US-PFIZER INC-2013251582

PATIENT
  Age: 48 Year
  Sex: Female
  Weight: 58.5 kg

DRUGS (1)
  1. LYRICA [Suspect]
     Dosage: UNK

REACTIONS (19)
  - Psychotic disorder [Recovering/Resolving]
  - Abasia [Recovering/Resolving]
  - Altered visual depth perception [Recovering/Resolving]
  - Nerve injury [Recovering/Resolving]
  - Lack of spontaneous speech [Recovering/Resolving]
  - Reading disorder [Recovering/Resolving]
  - Dysgraphia [Recovering/Resolving]
  - Hallucination [Recovering/Resolving]
  - Cardiac disorder [Recovering/Resolving]
  - Bradycardia [Recovering/Resolving]
  - Aphonia [Recovering/Resolving]
  - Nervousness [Recovering/Resolving]
  - Loss of proprioception [Recovering/Resolving]
  - Visual impairment [Recovering/Resolving]
  - Feeling abnormal [Recovering/Resolving]
  - Mental disorder [Recovering/Resolving]
  - Nervous system disorder [Recovering/Resolving]
  - Abnormal behaviour [Recovering/Resolving]
  - Arthritis [Recovering/Resolving]
